FAERS Safety Report 6133176-9 (Version None)
Quarter: 2009Q1

REPORT INFORMATION
  Report Type: 
  Country: None (occurrence: None)
  Receive Date: 20090324
  Receipt Date: 20090312
  Transmission Date: 20090719
  Serious: Yes (Hospitalization)
  Sender: FDA-Public Use
  Company Number: 233270K08USA

PATIENT
  Age: 51 Year
  Sex: Female
  Weight: 89 kg

DRUGS (19)
  1. REBIF [Suspect]
     Indication: MULTIPLE SCLEROSIS
     Dosage: 44 MCG, SUBCUTANEOUS
     Route: 058
     Dates: start: 20080627
  2. GLUCOPHAGE [Concomitant]
  3. ACTOS [Concomitant]
  4. LYRICA [Concomitant]
  5. EFFEXOR [Concomitant]
  6. LIPITOR [Concomitant]
  7. PRINIVIL (LISINOPRIL /00894001/) [Concomitant]
  8. DETROL [Concomitant]
  9. PROTONIX [Concomitant]
  10. FERROUS SULFATE TAB [Concomitant]
  11. AMANTADINE HCL [Concomitant]
  12. SINGULAIR (MONTELUKAST /01362601/) [Concomitant]
  13. KLONOPIN [Concomitant]
  14. ATIVAN [Concomitant]
  15. AMBIEN [Concomitant]
  16. VITAMIN B12 [Concomitant]
  17. SOLU-MEDROL [Concomitant]
  18. HUMULIN R INSULIN (INSULIN HUMAN) [Concomitant]
  19. PROVIGIL [Concomitant]

REACTIONS (2)
  - INTERVERTEBRAL DISC PROTRUSION [None]
  - POST PROCEDURAL HAEMATOMA [None]
